FAERS Safety Report 25915606 (Version 2)
Quarter: 2025Q4

REPORT INFORMATION
  Report Type: Spontaneous
  Country: US (occurrence: US)
  Receive Date: 20251013
  Receipt Date: 20251015
  Transmission Date: 20260117
  Serious: Yes (Hospitalization)
  Sender: PFIZER
  Company Number: US-MLMSERVICE-20251007-PI665195-00303-2

PATIENT
  Age: 67 Year
  Sex: Female

DRUGS (16)
  1. SPIRONOLACTONE [Suspect]
     Active Substance: SPIRONOLACTONE
     Dosage: UNK
  2. LETROZOLE [Concomitant]
     Active Substance: LETROZOLE
     Indication: Metastases to bone
     Dosage: 2.5 MG, 1X/DAY
     Dates: start: 201206
  3. LETROZOLE [Concomitant]
     Active Substance: LETROZOLE
     Indication: Invasive ductal breast carcinoma
  4. LETROZOLE [Concomitant]
     Active Substance: LETROZOLE
     Indication: Triple positive breast cancer
  5. LETROZOLE [Concomitant]
     Active Substance: LETROZOLE
     Indication: Metastases to spine
  6. LETROZOLE [Concomitant]
     Active Substance: LETROZOLE
     Indication: Intraductal proliferative breast lesion
  7. ENHERTU [Concomitant]
     Active Substance: FAM-TRASTUZUMAB DERUXTECAN-NXKI
     Indication: Metastases to bone
     Dosage: UNK
     Dates: start: 202110
  8. ENHERTU [Concomitant]
     Active Substance: FAM-TRASTUZUMAB DERUXTECAN-NXKI
     Indication: Invasive ductal breast carcinoma
  9. ENHERTU [Concomitant]
     Active Substance: FAM-TRASTUZUMAB DERUXTECAN-NXKI
     Indication: Triple positive breast cancer
  10. ENHERTU [Concomitant]
     Active Substance: FAM-TRASTUZUMAB DERUXTECAN-NXKI
     Indication: Metastases to spine
  11. ENHERTU [Concomitant]
     Active Substance: FAM-TRASTUZUMAB DERUXTECAN-NXKI
     Indication: Intraductal proliferative breast lesion
  12. ENHERTU [Concomitant]
     Active Substance: FAM-TRASTUZUMAB DERUXTECAN-NXKI
     Indication: Human epidermal growth factor receptor positive
  13. HERCEPTIN [Concomitant]
     Active Substance: TRASTUZUMAB
     Indication: Human epidermal growth factor receptor positive
     Dosage: UNK
     Dates: start: 201207
  14. PERTUZUMAB [Concomitant]
     Active Substance: PERTUZUMAB
     Dosage: UNK
  15. DENOSUMAB [Concomitant]
     Active Substance: DENOSUMAB
     Indication: Hypertrophic cardiomyopathy
     Dosage: 120 MG
     Dates: start: 201305, end: 202501
  16. DENOSUMAB [Concomitant]
     Active Substance: DENOSUMAB
     Indication: Bone disorder

REACTIONS (2)
  - Dehydration [Unknown]
  - Condition aggravated [Unknown]

NARRATIVE: CASE EVENT DATE: 20250101
